FAERS Safety Report 4553005-4 (Version None)
Quarter: 2005Q1

REPORT INFORMATION
  Report Type: 
  Country: None (occurrence: None)
  Receive Date: 20050113
  Receipt Date: 20041228
  Transmission Date: 20050727
  Serious: Yes (Hospitalization, Other)
  Sender: FDA-Public Use
  Company Number: 2004BI002409

PATIENT
  Age: 50 Year
  Sex: Female
  Weight: 54.4316 kg

DRUGS (9)
  1. AVONEX [Suspect]
     Indication: MULTIPLE SCLEROSIS
     Dosage: 30 UG; QW; IM
     Route: 030
     Dates: start: 20000101, end: 20030301
  2. AVONEX [Suspect]
     Indication: MULTIPLE SCLEROSIS
     Dosage: 30 UG; QW; IM
     Route: 030
     Dates: start: 20040101, end: 20040601
  3. AVONEX [Suspect]
     Indication: MULTIPLE SCLEROSIS
     Dosage: 30 UG; QW; IM
     Route: 030
     Dates: start: 20040601
  4. PROZAC [Concomitant]
  5. KLONOPIN [Concomitant]
  6. NEXIUM [Concomitant]
  7. DIFLUCAN [Concomitant]
  8. GUAIFENESIN [Concomitant]
  9. ATENOLOL [Concomitant]

REACTIONS (9)
  - ASCITES [None]
  - BACK PAIN [None]
  - CARDIAC DISORDER [None]
  - CARDIAC FAILURE CONGESTIVE [None]
  - CONVULSION [None]
  - FLUID RETENTION [None]
  - MITRAL VALVE INCOMPETENCE [None]
  - MUSCLE SPASTICITY [None]
  - PAIN [None]
